FAERS Safety Report 5987404-0 (Version None)
Quarter: 2008Q4

REPORT INFORMATION
  Report Type: 
  Country: None (occurrence: None)
  Receive Date: 20081209
  Receipt Date: 20081201
  Transmission Date: 20090506
  Serious: Yes (Hospitalization, Other)
  Sender: FDA-Public Use
  Company Number: GB-ABBOTT-08P-167-0486258-00

PATIENT
  Sex: Male
  Weight: 50 kg

DRUGS (5)
  1. HUMIRA [Suspect]
     Indication: CROHN'S DISEASE
     Route: 058
     Dates: start: 20080828
  2. HUMIRA [Suspect]
     Dates: start: 20080911, end: 20080911
  3. HUMIRA [Suspect]
     Dates: start: 20080926
  4. METHOTREXATE [Concomitant]
     Indication: CROHN'S DISEASE
     Dosage: 25 MG WEEKLY
     Route: 058
     Dates: end: 20081102
  5. METHOTREXATE [Concomitant]

REACTIONS (8)
  - C-REACTIVE PROTEIN INCREASED [None]
  - DIARRHOEA [None]
  - MALAISE [None]
  - PYREXIA [None]
  - RASH [None]
  - RASH GENERALISED [None]
  - WEIGHT DECREASED [None]
  - WHITE BLOOD CELL COUNT INCREASED [None]
